FAERS Safety Report 6895437-5 (Version None)
Quarter: 2010Q3

REPORT INFORMATION
  Report Type: 
  Country: None (occurrence: None)
  Receive Date: 20100802
  Receipt Date: 20100721
  Transmission Date: 20110219
  Serious: Yes (Hospitalization, Disabling)
  Sender: FDA-Public Use
  Company Number: GB-BAYER-201031940GPV

PATIENT
  Age: 56 Year
  Sex: Male

DRUGS (1)
  1. BETAFERON [Suspect]
     Indication: MULTIPLE SCLEROSIS
     Dosage: DURATION OF THERAPY: SEVEN MONTHS
     Route: 058

REACTIONS (5)
  - ADVERSE EVENT [None]
  - FOOD POISONING [None]
  - INJECTION SITE HAEMATOMA [None]
  - INJECTION SITE REACTION [None]
  - MOBILITY DECREASED [None]
